FAERS Safety Report 6397362-5 (Version None)
Quarter: 2009Q4

REPORT INFORMATION
  Report Type: 
  Country: None (occurrence: None)
  Receive Date: 20091012
  Receipt Date: 20090929
  Transmission Date: 20100525
  Serious: Yes (Hospitalization, Other)
  Sender: FDA-Public Use
  Company Number: PHEH2009US12491

PATIENT
  Sex: Male

DRUGS (3)
  1. DIOVAN HCT [Suspect]
  2. CELEBREX [Suspect]
  3. SULFUR [Suspect]

REACTIONS (3)
  - BLISTER [None]
  - GOUT [None]
  - MALAISE [None]
